FAERS Safety Report 5514893-8 (Version None)
Quarter: 2007Q4

REPORT INFORMATION
  Report Type: 
  Country: None (occurrence: None)
  Receive Date: 20071113
  Receipt Date: 20061003
  Transmission Date: 20080405
  Serious: No
  Sender: FDA-Public Use
  Company Number: A0620979A

PATIENT
  Age: 85 Year
  Sex: Female

DRUGS (17)
  1. COREG [Suspect]
     Dosage: 3.125MG TWICE PER DAY
     Route: 048
     Dates: start: 19860101
  2. NIASPAN [Suspect]
     Indication: DRUG USE FOR UNKNOWN INDICATION
     Route: 065
  3. ASPIRIN [Concomitant]
  4. UNKNOWN MEDICATION [Concomitant]
  5. UNKNOWN MEDICATION [Concomitant]
  6. FUROSEMIDE [Concomitant]
  7. STARLIX [Concomitant]
  8. UNKNOWN MEDICATION [Concomitant]
  9. NEURONTIN [Concomitant]
  10. NORTRIPTYLINE HCL [Concomitant]
  11. GLIMEPIRIDE [Concomitant]
  12. ASCORBIC ACID [Concomitant]
  13. LEVOTHYROXINE SODIUM [Concomitant]
  14. DULCOLAX [Concomitant]
  15. INSULIN [Concomitant]
  16. VYTORIN [Concomitant]
  17. NITROGLYCERIN [Concomitant]

REACTIONS (2)
  - BLOOD GLUCOSE FLUCTUATION [None]
  - BLOOD GLUCOSE INCREASED [None]
